FAERS Safety Report 13707137 (Version 2)
Quarter: 2017Q3

REPORT INFORMATION
  Report Type: Spontaneous
  Country: US (occurrence: US)
  Receive Date: 20170630
  Receipt Date: 20170717
  Transmission Date: 20171127
  Serious: Yes (Other)
  Sender: FDA-Public Use
  Company Number: US-GLAXOSMITHKLINE-US2017099770

PATIENT
  Age: 43 Year
  Sex: Male

DRUGS (13)
  1. NUCALA [Suspect]
     Active Substance: MEPOLIZUMAB
     Indication: ASTHMA
     Dosage: 100 MG, CYC
     Route: 058
     Dates: start: 20170522
  2. ALLOPURINOL. [Concomitant]
     Active Substance: ALLOPURINOL
  3. FLUTICASONE PROPIONATE OINTMENT [Concomitant]
  4. ADVAIR DISKUS [Concomitant]
     Active Substance: FLUTICASONE PROPIONATE\SALMETEROL XINAFOATE
  5. ALBUTEROL SULFATE INHALATION POWDER [Concomitant]
  6. HYDROCHLOROTHIAZIDE. [Concomitant]
     Active Substance: HYDROCHLOROTHIAZIDE
  7. DHEA [Concomitant]
     Active Substance: PRASTERONE
  8. VITAMIN D3 [Concomitant]
     Active Substance: CHOLECALCIFEROL
  9. EPINEPHRINE SOLUTION FOR INJECTION IN PRE-FILLED PEN [Concomitant]
  10. AMBIEN [Concomitant]
     Active Substance: ZOLPIDEM TARTRATE
  11. METOPROLOL. [Concomitant]
     Active Substance: METOPROLOL
  12. VITAMIN B12 [Concomitant]
     Active Substance: CYANOCOBALAMIN
  13. COLCRYS [Concomitant]
     Active Substance: COLCHICINE

REACTIONS (3)
  - Asthma [Recovered/Resolved]
  - Dyspnoea [Recovered/Resolved]
  - Urticaria [Recovered/Resolved]

NARRATIVE: CASE EVENT DATE: 20170625
